FAERS Safety Report 11512622 (Version 1)
Quarter: 2015Q3

REPORT INFORMATION
  Report Type: Spontaneous
  Country: AR (occurrence: AR)
  Receive Date: 20150916
  Receipt Date: 20150916
  Transmission Date: 20151125
  Serious: Yes (Other)
  Sender: FDA-Public Use
  Company Number: AR-AMGEN-ARGSP2015094971

PATIENT
  Age: 71 Year
  Sex: Female

DRUGS (6)
  1. CELESTON CHRONODOSE [Concomitant]
     Dosage: UNK
  2. ENBREL [Suspect]
     Active Substance: ETANERCEPT
     Indication: PRODUCT USED FOR UNKNOWN INDICATION
     Dosage: UNK
     Route: 065
     Dates: start: 2011, end: 2013
  3. CRONOCORTEROID [Concomitant]
     Dosage: UNK
  4. BLOKIUM GESIC [Concomitant]
     Dosage: UNK
  5. INMUNOARTRO [Concomitant]
     Dosage: UNK
  6. HUMIRA [Suspect]
     Active Substance: ADALIMUMAB
     Indication: PRODUCT USED FOR UNKNOWN INDICATION
     Dosage: UNK
     Route: 065

REACTIONS (4)
  - Mobility decreased [Unknown]
  - Tuberculosis [Unknown]
  - Disease progression [Unknown]
  - Pain [Unknown]
